FAERS Safety Report 11433005 (Version 8)
Quarter: 2016Q1

REPORT INFORMATION
  Report Type: Report from Study
  Country: US (occurrence: US)
  Receive Date: 20150829
  Receipt Date: 20160205
  Transmission Date: 20160525
  Serious: Yes (Other)
  Sender: FDA-Public Use
  Company Number: PHEH2015US015892

PATIENT
  Age: 64 Year
  Sex: Female
  Weight: 75.7 kg

DRUGS (28)
  1. EXTAVIA [Suspect]
     Active Substance: INTERFERON BETA-1B
     Dosage: WEEK 5-6: 0.1875 MG (0.75 ML), QOD
     Route: 058
  2. TOPAMAX [Concomitant]
     Active Substance: TOPIRAMATE
     Dosage: 125 MG, 5 TABS ORAL NIGHTLY (BEDTIME)
     Route: 048
  3. ASPIRIN. [Concomitant]
     Active Substance: ASPIRIN
     Indication: ARTHRALGIA
  4. FOLATE [Concomitant]
     Active Substance: FOLATE SODIUM
     Indication: PRODUCT USED FOR UNKNOWN INDICATION
     Dosage: 1 DF, QD
     Route: 048
  5. EXTAVIA [Suspect]
     Active Substance: INTERFERON BETA-1B
     Dosage: WEEK 3-4: 0.125 MG (0.5 ML), QOD
     Route: 058
  6. ESTRACE VAGINAL [Concomitant]
     Indication: PRODUCT USED FOR UNKNOWN INDICATION
     Dosage: 42 G, QW3, PLACE1 DIMESIZED AMOUNT INTO YOUR VAGINA WITHFINGER
     Route: 065
  7. RELPAX [Concomitant]
     Active Substance: ELETRIPTAN HYDROBROMIDE
     Indication: MIGRAINE
     Dosage: 40 MG, QD
     Route: 048
  8. NARATRIPTAN [Concomitant]
     Active Substance: NARATRIPTAN HYDROCHLORIDE
     Indication: HEADACHE
     Dosage: 25 MG, PRN
     Route: 048
  9. BETASERON [Concomitant]
     Active Substance: INTERFERON BETA-1B
     Indication: PRODUCT USED FOR UNKNOWN INDICATION
     Dosage: 0.25 MG, QOD
     Route: 058
  10. CALCARB [Concomitant]
     Indication: PRODUCT USED FOR UNKNOWN INDICATION
     Dosage: 1200 MG, 2 TABS TID-WA
     Route: 048
  11. ACETYLCYSTEINE. [Concomitant]
     Active Substance: ACETYLCYSTEINE
     Indication: PRODUCT USED FOR UNKNOWN INDICATION
     Dosage: 1 DF, QD
     Route: 048
  12. TOPAMAX [Concomitant]
     Active Substance: TOPIRAMATE
     Indication: MIGRAINE PROPHYLAXIS
     Dosage: 25 MG, QHS (AT BEDTIME)
     Route: 048
  13. GOODYS POWDERS [Concomitant]
     Indication: HEADACHE
     Route: 065
  14. MOBIC [Concomitant]
     Active Substance: MELOXICAM
     Indication: ARTHRALGIA
     Dosage: 7.5 MG, QD
     Route: 048
  15. RELPAX [Concomitant]
     Active Substance: ELETRIPTAN HYDROBROMIDE
     Dosage: MAY REPEAT DOSE ONCE IN 2 HOURS. 6 TAB(S),PRN
     Route: 065
  16. SYNTHROID [Concomitant]
     Active Substance: LEVOTHYROXINE SODIUM
     Indication: PRODUCT USED FOR UNKNOWN INDICATION
     Dosage: 50 UG, QD
     Route: 048
  17. VITAMIN C [Concomitant]
     Active Substance: ASCORBIC ACID
     Indication: PRODUCT USED FOR UNKNOWN INDICATION
     Dosage: 1 DF, QD
     Route: 065
  18. EXTAVIA [Suspect]
     Active Substance: INTERFERON BETA-1B
     Indication: MULTIPLE SCLEROSIS
     Dosage: WEEK 1-2: (0.0625 MG) (0.25 ML) QOD
     Route: 058
     Dates: start: 19950915
  19. VOLTAREN [Concomitant]
     Active Substance: DICLOFENAC SODIUM
     Indication: PAIN
     Dosage: 1 DF, QID
     Route: 061
  20. MICARDIS [Concomitant]
     Active Substance: TELMISARTAN
     Indication: PRODUCT USED FOR UNKNOWN INDICATION
     Dosage: 80 MG, QD NIGHTLY (BEDTIME)
     Route: 048
  21. ASPIRIN. [Concomitant]
     Active Substance: ASPIRIN
     Indication: PROPHYLAXIS
     Route: 065
  22. VITAMIN B12 [Concomitant]
     Active Substance: CYANOCOBALAMIN
     Indication: PRODUCT USED FOR UNKNOWN INDICATION
     Dosage: 1 DF, QD
     Route: 048
  23. VERAPAMIL [Concomitant]
     Active Substance: VERAPAMIL HYDROCHLORIDE
     Indication: HYPERTENSION
     Dosage: 1 DF, QD
     Route: 048
  24. FLOMAX [Concomitant]
     Active Substance: TAMSULOSIN HYDROCHLORIDE
     Indication: NEUROGENIC BLADDER
     Dosage: 0.4 MG, BID
     Route: 048
  25. ESTRACE [Concomitant]
     Active Substance: ESTRADIOL
     Indication: HORMONE THERAPY
     Dosage: AT BEDTIME, 3 X WEEK
     Route: 067
  26. EXTAVIA [Suspect]
     Active Substance: INTERFERON BETA-1B
     Dosage: WEEK 7+: 0.25 MG (1 ML), QOD
     Route: 058
  27. VOLTAREN [Concomitant]
     Active Substance: DICLOFENAC SODIUM
     Indication: ARTHRALGIA
     Dosage: 300 MG, PRN
     Route: 065
  28. MULTIPLE VITAMINS [Concomitant]
     Active Substance: VITAMINS
     Indication: PRODUCT USED FOR UNKNOWN INDICATION
     Dosage: 1 DF, QD
     Route: 048

REACTIONS (10)
  - Anxiety [Unknown]
  - Injection site erythema [Recovering/Resolving]
  - Device issue [Unknown]
  - Muscle spasms [Unknown]
  - Fatigue [Unknown]
  - Urinary tract infection [Recovered/Resolved]
  - Hypertension [Unknown]
  - Xanthogranuloma [Unknown]
  - Nocturia [Unknown]
  - Incorrect dose administered [Unknown]

NARRATIVE: CASE EVENT DATE: 2001
